FAERS Safety Report 5015048-6 (Version None)
Quarter: 2006Q2

REPORT INFORMATION
  Report Type: 
  Country: None (occurrence: None)
  Receive Date: 20060530
  Receipt Date: 20060519
  Transmission Date: 20061013
  Serious: Yes (Life-Threatening, Hospitalization)
  Sender: FDA-Public Use
  Company Number: 221962

PATIENT
  Sex: Male
  Weight: 86 kg

DRUGS (14)
  1. MABTHERA              (RITUXIMAB) [Suspect]
     Indication: NON-HODGKIN'S LYMPHOMA
     Dosage: SEE IMAGE
     Route: 042
     Dates: start: 20050608, end: 20050620
  2. MABTHERA              (RITUXIMAB) [Suspect]
     Indication: NON-HODGKIN'S LYMPHOMA
     Dosage: SEE IMAGE
     Route: 042
     Dates: start: 20050621, end: 20051101
  3. CYCLOPHOSPHAMIDE [Concomitant]
  4. VINCRISTINE [Concomitant]
  5. DECORTIN (PREDNISONE) [Concomitant]
  6. CHLORAMBUCIL (CHLORAMBUCIL) [Concomitant]
  7. MAGNESIUM SULFATE [Concomitant]
  8. ACETAMINOPHEN [Concomitant]
  9. TAMSULOSIN HCL [Concomitant]
  10. XUSAL (LEVOCETIRIZINE) [Concomitant]
  11. CRATAEGUS (CRATEGUS) [Concomitant]
  12. TRIANWOLFF           (INGREDIENTS) (GENERIC COMPONENT (S)) [Concomitant]
  13. SOVENTOL   (BAMIPINE) [Concomitant]
  14. CHLORAMBUCIL (CHLORAMBUCIL) [Concomitant]

REACTIONS (4)
  - BLOOD IMMUNOGLOBULIN A DECREASED [None]
  - BLOOD IMMUNOGLOBULIN M DECREASED [None]
  - CELLULITIS [None]
  - GRANULOCYTOPENIA [None]
